FAERS Safety Report 4873866-9 (Version None)
Quarter: 2006Q1

REPORT INFORMATION
  Report Type: 
  Country: None (occurrence: None)
  Receive Date: 20060103
  Receipt Date: 20060103
  Transmission Date: 20060701
  Serious: Yes (Hospitalization)
  Sender: FDA-Public Use
  Company Number: None

PATIENT
  Age: 40 Year
  Sex: Female
  Weight: 63.5036 kg

DRUGS (1)
  1. ZOFRAN [Suspect]
     Indication: NAUSEA
     Dosage: 4MG  EVERY 4 HT  IV DRIP
     Route: 041
     Dates: start: 20051227, end: 20051228

REACTIONS (10)
  - AGITATION [None]
  - ANAPHYLACTIC REACTION [None]
  - CONFUSIONAL STATE [None]
  - CONVULSION [None]
  - DRUG HYPERSENSITIVITY [None]
  - FATIGUE [None]
  - HEPATIC ENZYME ABNORMAL [None]
  - LABORATORY TEST ABNORMAL [None]
  - REFUSAL OF TREATMENT BY PATIENT [None]
  - VOMITING [None]
